FAERS Safety Report 8379943-2 (Version None)
Quarter: 2012Q2

REPORT INFORMATION
  Report Type: 
  Country: None (occurrence: None)
  Receive Date: 20120523
  Receipt Date: 20120515
  Transmission Date: 20120825
  Serious: Yes (Hospitalization)
  Sender: FDA-Public Use
  Company Number: JP-JNJFOC-20120512665

PATIENT
  Sex: Female
  Weight: 46 kg

DRUGS (13)
  1. INDAPAMIDE [Concomitant]
     Route: 048
  2. GALANTAMINE HYDROBROMIDE [Suspect]
     Route: 048
     Dates: start: 20120423, end: 20120502
  3. ETHYL ICOSAPENTATE [Concomitant]
     Route: 048
  4. LEVOTHYROXINE SODIUM [Concomitant]
     Route: 048
  5. GALANTAMINE HYDROBROMIDE [Suspect]
     Route: 048
     Dates: start: 20120302, end: 20120506
  6. UNKNOWN MEDICATION [Concomitant]
     Route: 065
     Dates: start: 20120327, end: 20120327
  7. MIYA BM [Concomitant]
     Route: 048
  8. COLONEL [Concomitant]
     Route: 048
     Dates: start: 20120414
  9. GALANTAMINE HYDROBROMIDE [Suspect]
     Indication: DEMENTIA ALZHEIMER'S TYPE
     Route: 048
     Dates: start: 20120506
  10. CALBLOCK [Concomitant]
     Route: 048
  11. COLONEL [Concomitant]
     Route: 048
     Dates: end: 20120413
  12. GALANTAMINE HYDROBROMIDE [Suspect]
     Route: 048
     Dates: start: 20120327, end: 20120423
  13. FERROUS CITRATE [Concomitant]
     Route: 048

REACTIONS (1)
  - DECREASED APPETITE [None]
